FAERS Safety Report 10914635 (Version 1)
Quarter: 2015Q1

REPORT INFORMATION
  Report Type: Report from Study
  Country: IN (occurrence: IN)
  Receive Date: 20150313
  Receipt Date: 20150313
  Transmission Date: 20150721
  Serious: Yes (Hospitalization)
  Sender: FDA-Public Use
  Company Number: PHHY2015IN025292

PATIENT
  Age: 73 Year
  Sex: Female
  Weight: 54 kg

DRUGS (4)
  1. ACLASTA [Suspect]
     Active Substance: ZOLEDRONIC ACID
     Indication: OSTEOPOROSIS
     Dosage: UNK ONCE A YEAR
     Route: 042
     Dates: start: 20140309
  2. NEUROBION FORTE [Concomitant]
     Active Substance: CYANOCOBALAMIN\PYRIDOXINE HYDROCHLORIDE\THIAMINE DISULFIDE
     Indication: VITAMIN SUPPLEMENTATION
     Dosage: UNK
     Route: 048
     Dates: start: 20140214
  3. OMEZ//OMEPRAZOLE [Concomitant]
     Indication: OESOPHAGEAL DISORDER
     Dosage: UNK
     Route: 048
     Dates: start: 20140214
  4. OMEZ//OMEPRAZOLE [Concomitant]
     Indication: GASTRIC DISORDER

REACTIONS (3)
  - Fall [Unknown]
  - Pain [Recovering/Resolving]
  - Ankle fracture [Recovering/Resolving]

NARRATIVE: CASE EVENT DATE: 20150214
